FAERS Safety Report 21881609 (Version 5)
Quarter: 2023Q1

REPORT INFORMATION
  Report Type: Spontaneous
  Country: CA (occurrence: CA)
  Receive Date: 20230119
  Receipt Date: 20230322
  Transmission Date: 20230418
  Serious: Yes (Other)
  Sender: FDA-Public Use
  Company Number: CA-CELLTRION INC.-2023CA001018

PATIENT

DRUGS (8)
  1. INFLECTRA [Suspect]
     Active Substance: INFLIXIMAB-DYYB
     Indication: Colitis ulcerative
     Dosage: 5 MG/KG, WEEKS 0, 2, 6, THEN Q8 WEEKS
     Route: 042
     Dates: start: 20221006, end: 20230110
  2. INFLECTRA [Suspect]
     Active Substance: INFLIXIMAB-DYYB
     Dosage: 5 MG/KG, WEEKS 0, 2, 6, THEN Q8 WEEKS
     Route: 042
     Dates: start: 20221115
  3. INFLECTRA [Suspect]
     Active Substance: INFLIXIMAB-DYYB
     Dosage: 5 MG/KG, WEEKS 0, 2, 6, THEN Q8 WEEKS
     Route: 042
     Dates: start: 20230110
  4. INFLECTRA [Suspect]
     Active Substance: INFLIXIMAB-DYYB
     Dosage: 305 MG (5 MG/KG, REINDUCTION 0-2-6 AND THEN Q 4 WEEKS)
     Route: 042
     Dates: start: 20230202
  5. INFLECTRA [Suspect]
     Active Substance: INFLIXIMAB-DYYB
     Dosage: 305 MG (5 MG/KG, REINDUCTION 0-2-6 AND THEN Q 4 WEEKS)
     Route: 042
     Dates: start: 20230202
  6. INFLECTRA [Suspect]
     Active Substance: INFLIXIMAB-DYYB
     Dosage: 300MG (5MG/KG), REINDUCTION WEEK 2
     Route: 042
     Dates: start: 20230214
  7. INFLECTRA [Suspect]
     Active Substance: INFLIXIMAB-DYYB
     Dosage: 5 MG/KG (ADMINISTERED: 315MG), RELOAD W6 ( RELOAD W0, W2, W6, Q4W)
     Route: 042
     Dates: start: 20230314
  8. PREDNISONE [Concomitant]
     Active Substance: PREDNISONE
     Indication: Colitis ulcerative
     Dosage: 1 DF
     Dates: start: 202208

REACTIONS (6)
  - Condition aggravated [Not Recovered/Not Resolved]
  - Therapeutic response shortened [Unknown]
  - Drug level decreased [Unknown]
  - Off label use [Unknown]
  - Off label use [Unknown]
  - Intentional product use issue [Unknown]

NARRATIVE: CASE EVENT DATE: 20230110
